FAERS Safety Report 12293390 (Version 2)
Quarter: 2016Q2

REPORT INFORMATION
  Report Type: Spontaneous
  Country: US (occurrence: US)
  Receive Date: 20160421
  Receipt Date: 20160519
  Transmission Date: 20160815
  Serious: No
  Sender: FDA-Public Use
  Company Number: US-TEVA-647080ACC

PATIENT
  Age: 20 Year
  Sex: Female
  Weight: 52.21 kg

DRUGS (1)
  1. PLAN B ONE-STEP [Suspect]
     Active Substance: LEVONORGESTREL
     Indication: POST COITAL CONTRACEPTION

REACTIONS (4)
  - Muscle spasms [Recovered/Resolved]
  - Menorrhagia [Unknown]
  - Menstruation delayed [Not Recovered/Not Resolved]
  - Menstrual disorder [Unknown]

NARRATIVE: CASE EVENT DATE: 201602
